FAERS Safety Report 6602081-3 (Version None)
Quarter: 2010Q1

REPORT INFORMATION
  Report Type: 
  Country: None (occurrence: None)
  Receive Date: 20100225
  Receipt Date: 20100212
  Transmission Date: 20100710
  Serious: Yes (Hospitalization, Disabling, Other)
  Sender: FDA-Public Use
  Company Number: PHEH2008US07786

PATIENT
  Sex: Female

DRUGS (24)
  1. ZELNORM [Suspect]
     Dosage: UNK
     Dates: start: 20060601, end: 20060901
  2. ASPIRIN [Concomitant]
  3. RYTHMOL [Concomitant]
  4. PRAVACHOL [Concomitant]
  5. NIASPAN [Concomitant]
  6. CALTRATE [Concomitant]
  7. CRESTOR [Concomitant]
  8. CLOPIDOGREL [Concomitant]
  9. METOPROLOL TARTRATE [Concomitant]
  10. NITROGLYCERIN [Concomitant]
  11. ALPRAZOLAM [Concomitant]
  12. TEMAZEPAM [Concomitant]
  13. DIAZEPAM [Concomitant]
  14. ZOLPIDEM [Concomitant]
  15. ACETAMINOPHEN [Concomitant]
  16. BIVALIRUDIN [Concomitant]
  17. SIMVASTATIN [Concomitant]
  18. PROPAFENONE [Concomitant]
  19. OXYCODONE W/PARACETAMOL [Concomitant]
  20. TYLENOL W/ CODEINE NO. 3 [Concomitant]
  21. LOVAZA [Suspect]
  22. VYTORIN [Concomitant]
  23. BLACK COHOSH [Concomitant]
  24. OMACOR                             /01403701/ [Concomitant]

REACTIONS (20)
  - ANGINA PECTORIS [None]
  - ASTHENIA [None]
  - BACK PAIN [None]
  - CARDIAC FAILURE CONGESTIVE [None]
  - CHEST PAIN [None]
  - COLONIC POLYP [None]
  - CONSTIPATION [None]
  - CORONARY ARTERY DISEASE [None]
  - DIZZINESS [None]
  - DYSPNOEA [None]
  - GENERAL PHYSICAL HEALTH DETERIORATION [None]
  - HAEMATOMA [None]
  - INJURY [None]
  - MYOCARDIAL INFARCTION [None]
  - NECK PAIN [None]
  - OEDEMA [None]
  - PULMONARY HYPERTENSION [None]
  - STENT PLACEMENT [None]
  - TRICUSPID VALVE INCOMPETENCE [None]
  - VENTRICULAR EXTRASYSTOLES [None]
